FAERS Safety Report 19286034 (Version 1)
Quarter: 2021Q2

REPORT INFORMATION
  Report Type: Spontaneous
  Country: US (occurrence: US)
  Receive Date: 20210521
  Receipt Date: 20210521
  Transmission Date: 20210717
  Serious: No
  Sender: FDA-Public Use
  Company Number: US-SA-2021SA166847

PATIENT
  Sex: Male

DRUGS (1)
  1. DUPIXENT [Suspect]
     Active Substance: DUPILUMAB
     Indication: DERMATITIS ATOPIC
     Dosage: 300 MG, QOW
     Route: 058

REACTIONS (14)
  - Pruritus [Unknown]
  - Therapeutic response shortened [Unknown]
  - Asthma [Unknown]
  - Eyelids pruritus [Unknown]
  - Eyelid sensory disorder [Unknown]
  - Oropharyngeal pain [Unknown]
  - Hypersensitivity [Unknown]
  - Dry skin [Unknown]
  - Eyelid skin dryness [Unknown]
  - Eyelid exfoliation [Unknown]
  - Flushing [Unknown]
  - Eye discharge [Unknown]
  - Eczema [Unknown]
  - Incorrect route of product administration [Unknown]
